FAERS Safety Report 22684785 (Version 2)
Quarter: 2023Q4

REPORT INFORMATION
  Report Type: Spontaneous
  Country: US (occurrence: US)
  Receive Date: 20230710
  Receipt Date: 20231116
  Transmission Date: 20240109
  Serious: No
  Sender: FDA-Public Use
  Company Number: US-NEBO-PC011034

PATIENT
  Age: 21 Year
  Sex: Female

DRUGS (1)
  1. MONOFERRIC [Suspect]
     Active Substance: FERRIC DERISOMALTOSE
     Indication: Product used for unknown indication
     Route: 050
     Dates: start: 20230613, end: 20230613

REACTIONS (2)
  - Dyspnoea [Recovered/Resolved]
  - Chest discomfort [Recovered/Resolved]

NARRATIVE: CASE EVENT DATE: 20230613
